FAERS Safety Report 6924365-1 (Version None)
Quarter: 2010Q3

REPORT INFORMATION
  Report Type: 
  Country: None (occurrence: None)
  Receive Date: 20100811
  Receipt Date: 20100811
  Transmission Date: 20110219
  Serious: No
  Sender: FDA-Public Use
  Company Number: None

PATIENT
  Sex: Female
  Weight: 52.6173 kg

DRUGS (4)
  1. CEFTIN [Suspect]
     Indication: RHINITIS ALLERGIC
     Dosage: 250MG BID PO
     Route: 048
     Dates: start: 20080501, end: 20080510
  2. LORATADINE [Concomitant]
  3. MUCINEX D [Concomitant]
  4. NS NASAL [Concomitant]

REACTIONS (2)
  - DRUG HYPERSENSITIVITY [None]
  - RASH GENERALISED [None]
